FAERS Safety Report 11008441 (Version 1)
Quarter: 2015Q2

REPORT INFORMATION
  Report Type: Spontaneous
  Country: FR (occurrence: FR)
  Receive Date: 20150410
  Receipt Date: 20150410
  Transmission Date: 20150821
  Serious: Yes (Hospitalization)
  Sender: FDA-Public Use
  Company Number: FR-ROCHE-1413598

PATIENT
  Sex: Female
  Weight: 80 kg

DRUGS (4)
  1. ROACTEMRA [Suspect]
     Active Substance: TOCILIZUMAB
     Indication: RHEUMATOID ARTHRITIS
     Route: 042
     Dates: start: 201209
  2. INEXIUM [Concomitant]
     Active Substance: ESOMEPRAZOLE
     Indication: RHEUMATOID ARTHRITIS
     Dosage: LESS THAN 1 DF WEEKLY
     Route: 048
  3. CELEBREX [Concomitant]
     Active Substance: CELECOXIB
     Indication: RHEUMATOID ARTHRITIS
     Route: 048
  4. TOPALGIC (FRANCE) [Concomitant]
     Active Substance: TRAMADOL
     Indication: RHEUMATOID ARTHRITIS
     Route: 048

REACTIONS (2)
  - Exposure via father [Unknown]
  - Gestational diabetes [Unknown]
